FAERS Safety Report 5373789-5 (Version None)
Quarter: 2007Q2

REPORT INFORMATION
  Report Type: 
  Country: None (occurrence: None)
  Receive Date: 20070615
  Receipt Date: 20070104
  Transmission Date: 20071010
  Serious: Yes (Other)
  Sender: FDA-Public Use
  Company Number: 200710112US

PATIENT
  Age: 32 Year
  Sex: Female

DRUGS (6)
  1. LANTUS [Suspect]
     Indication: DIABETES MELLITUS INSULIN-DEPENDENT
     Dosage: 22 U INJ
     Route: 042
     Dates: start: 20050901, end: 20061201
  2. LANTUS [Suspect]
     Indication: DIABETES MELLITUS INSULIN-DEPENDENT
     Dosage: 17 U INJ
     Route: 042
     Dates: start: 20061201
  3. NOVOLOG [Concomitant]
  4. TOPROL-XL [Concomitant]
  5. AMLDOIPINE (NORVASC /00972401/) [Concomitant]
  6. LISINOPRIL [Concomitant]

REACTIONS (5)
  - BLOOD GLUCOSE INCREASED [None]
  - DIZZINESS [None]
  - DRUG INEFFECTIVE [None]
  - DYSGEUSIA [None]
  - HYPOGLYCAEMIA [None]
